FAERS Safety Report 18625690 (Version 1)
Quarter: 2020Q4

REPORT INFORMATION
  Report Type: Spontaneous
  Country: JP (occurrence: JP)
  Receive Date: 20201216
  Receipt Date: 20201216
  Transmission Date: 20210114
  Serious: Yes (Hospitalization, Other)
  Sender: FDA-Public Use
  Company Number: JP-BRISTOL-MYERS SQUIBB COMPANY-BMS-2020-098290

PATIENT
  Age: 63 Year
  Sex: Female

DRUGS (8)
  1. YERVOY [Suspect]
     Active Substance: IPILIMUMAB
     Dosage: UNK UNK, ONE TIME DOSE
     Route: 041
     Dates: start: 20200323, end: 20200323
  2. URSO 1A PHARMA [Concomitant]
     Indication: PRODUCT USED FOR UNKNOWN INDICATION
     Dosage: 300 MILLIGRAM, QD
     Route: 065
  3. OPDIVO [Suspect]
     Active Substance: NIVOLUMAB
     Dosage: UNK UNK, ONE TIME DOSE
     Route: 041
     Dates: start: 20200323, end: 20200323
  4. LATANOPROST. [Concomitant]
     Active Substance: LATANOPROST
     Indication: PRODUCT USED FOR UNKNOWN INDICATION
     Dosage: UNK
     Route: 047
  5. YERVOY [Suspect]
     Active Substance: IPILIMUMAB
     Dosage: UNK UNK, ONE TIME DOSE
     Route: 041
     Dates: start: 20200228, end: 20200228
  6. OPDIVO [Suspect]
     Active Substance: NIVOLUMAB
     Indication: MALIGNANT MELANOMA STAGE IV
     Dosage: UNK UNK, ONE TIME DOSE
     Route: 041
     Dates: start: 20200207, end: 20200207
  7. YERVOY [Suspect]
     Active Substance: IPILIMUMAB
     Indication: MALIGNANT MELANOMA STAGE IV
     Dosage: UNK UNK, ONE TIME DOSE
     Route: 041
     Dates: start: 20200207, end: 20200207
  8. OPDIVO [Suspect]
     Active Substance: NIVOLUMAB
     Dosage: UNK UNK, ONE TIME DOSE
     Route: 041
     Dates: start: 20200228, end: 20200228

REACTIONS (1)
  - Immune-mediated hepatic disorder [Recovered/Resolved]

NARRATIVE: CASE EVENT DATE: 20200323
